FAERS Safety Report 5975775-0 (Version None)
Quarter: 2008Q4

REPORT INFORMATION
  Report Type: 
  Country: None (occurrence: None)
  Receive Date: 20081202
  Receipt Date: 20081121
  Transmission Date: 20090506
  Serious: Yes (Other)
  Sender: FDA-Public Use
  Company Number: NL-MERCK-0811NLD00015

PATIENT
  Age: 37 Year
  Sex: Male
  Weight: 107 kg

DRUGS (4)
  1. ZETIA [Suspect]
     Route: 048
     Dates: start: 20060720, end: 20081020
  2. VALSARTAN [Concomitant]
     Route: 048
     Dates: start: 20061005
  3. FLUTICASONE PROPIONATE [Concomitant]
     Route: 065
  4. OMEPRAZOLE [Concomitant]
     Route: 048
     Dates: start: 19991111

REACTIONS (3)
  - BLOOD CREATINE PHOSPHOKINASE INCREASED [None]
  - MYALGIA [None]
  - TENDON RUPTURE [None]
